FAERS Safety Report 8333127-2 (Version None)
Quarter: 2012Q1

REPORT INFORMATION
  Report Type: 
  Country: None (occurrence: None)
  Receive Date: 20120327
  Receipt Date: 20110203
  Transmission Date: 20120608
  Serious: Yes (Other)
  Sender: FDA-Public Use
  Company Number: PHHY2011US09139

PATIENT
  Age: 57 Year
  Sex: Male

DRUGS (4)
  1. ACETYLSALICYLIC ACID SRT [Concomitant]
  2. GLEEVEC [Suspect]
     Indication: CHRONIC MYELOID LEUKAEMIA
     Dosage: 300 MG, 5DAYS PER WEEK, ORAL
     Route: 048
     Dates: start: 20090601
  3. XANAX [Concomitant]
  4. REMERON [Concomitant]

REACTIONS (3)
  - IRRITABLE BOWEL SYNDROME [None]
  - DIARRHOEA [None]
  - GENE MUTATION IDENTIFICATION TEST POSITIVE [None]
